FAERS Safety Report 18824873 (Version 1)
Quarter: 2021Q1

REPORT INFORMATION
  Report Type: Spontaneous
  Country: US (occurrence: US)
  Receive Date: 20210202
  Receipt Date: 20210202
  Transmission Date: 20210419
  Serious: No
  Sender: FDA-Public Use
  Company Number: US-PFIZER INC-2016400313

PATIENT
  Age: 69 Year
  Sex: Female
  Weight: 70 kg

DRUGS (29)
  1. RECLAST [Concomitant]
     Active Substance: ZOLEDRONIC ACID
     Indication: OSTEOPOROSIS
     Dosage: UNK (ONE TIME YEARLY)
     Route: 042
  2. TOPAMAX [Concomitant]
     Active Substance: TOPIRAMATE
     Indication: MIGRAINE PROPHYLAXIS
     Dosage: 200 MG, 1X/DAY (AT BEDTIME)
  3. VITAMIN B12 [Concomitant]
     Active Substance: CYANOCOBALAMIN
     Indication: ANAEMIA
     Dosage: 2000 UG, DAILY
  4. CARAFATE [Concomitant]
     Active Substance: SUCRALFATE
     Indication: OESOPHAGEAL DISORDER
  5. NORCO [Concomitant]
     Active Substance: ACETAMINOPHEN\HYDROCODONE BITARTRATE
     Indication: NEURALGIA
  6. XANAX [Concomitant]
     Active Substance: ALPRAZOLAM
     Indication: DEPRESSION
  7. FENTANYL. [Concomitant]
     Active Substance: FENTANYL
     Dosage: UNK (50 MCG/HR?1 EVERY 72 HOURS)
     Route: 062
  8. PREVACID [Concomitant]
     Active Substance: LANSOPRAZOLE
     Indication: GASTRIC DISORDER
     Dosage: 30 MG, 2X/DAY
  9. PREVACID [Concomitant]
     Active Substance: LANSOPRAZOLE
     Indication: OESOPHAGEAL DISORDER
  10. SYNTHROID [Concomitant]
     Active Substance: LEVOTHYROXINE SODIUM
     Dosage: 50 MG, 1X/DAY
  11. TORADOL [Concomitant]
     Active Substance: KETOROLAC TROMETHAMINE
     Indication: MIGRAINE
     Dosage: 10 MG, AS NEEDED (EVERY 6 HOURS)
  12. VITAMIN D [Concomitant]
     Active Substance: VITAMIN D NOS
     Indication: RICKETS
     Dosage: UNK, 1X/DAY
  13. LYRICA [Suspect]
     Active Substance: PREGABALIN
     Indication: PAIN
  14. CARAFATE [Concomitant]
     Active Substance: SUCRALFATE
     Indication: GASTRIC DISORDER
     Dosage: 1 G/10 ML (BEFORE MEAL AND AT BEDTIME) TWICE A DAY
  15. CYMBALTA [Concomitant]
     Active Substance: DULOXETINE HYDROCHLORIDE
     Indication: FIBROMYALGIA
     Dosage: 60 MG, 1X/DAY (AT NIGHT)
  16. DAYPRO [Concomitant]
     Active Substance: OXAPROZIN
     Indication: FIBROMYALGIA
     Dosage: 600 MG, TWICE A DAY (1 TABLET AT A.M AND 1 TABLET AT P.M)
  17. VITAMIN D [Concomitant]
     Active Substance: VITAMIN D NOS
     Indication: OSTEOPOROSIS
  18. VITAMIN B12 [Concomitant]
     Active Substance: CYANOCOBALAMIN
     Dosage: UNK, MONTHLY
  19. CLONIDINE HCL [Concomitant]
     Active Substance: CLONIDINE HYDROCHLORIDE
     Indication: BLOOD PRESSURE ABNORMAL
     Dosage: 0.1 MG, DAILY
  20. DAYPRO [Concomitant]
     Active Substance: OXAPROZIN
     Indication: NEURALGIA
  21. MONTELUKAST SODIUM. [Concomitant]
     Active Substance: MONTELUKAST SODIUM
     Dosage: 10 MG, 2X/DAY (EVERY 12 HOURS)
     Route: 048
  22. COPPER [Concomitant]
     Active Substance: COPPER
     Indication: ANAEMIA
     Dosage: 3 MG, DAILY
  23. NORCO [Concomitant]
     Active Substance: ACETAMINOPHEN\HYDROCODONE BITARTRATE
     Indication: PAIN IN EXTREMITY
     Dosage: 1 DF, AS NEEDED((HYDROCODONE BITARTRATE:10 MG; PARACETAMOL: 325 MG),AS NEEDED (EVERY 6 HOURS))
  24. XANAX [Concomitant]
     Active Substance: ALPRAZOLAM
     Indication: ANXIETY
     Dosage: 1 MG, 4X/DAY
  25. ZINC. [Concomitant]
     Active Substance: ZINC
     Indication: ANAEMIA
     Dosage: 50 MG, DAILY
  26. LYRICA [Suspect]
     Active Substance: PREGABALIN
     Indication: FIBROMYALGIA
     Dosage: 150 MG, 4X/DAY
     Route: 048
  27. LYRICA [Suspect]
     Active Substance: PREGABALIN
     Indication: LUMBAR RADICULOPATHY
  28. VENOFER [Concomitant]
     Active Substance: IRON SUCROSE
     Indication: ANAEMIA
     Dosage: UNK,  EVERY 6 WEEKS
     Route: 041
  29. ZANAFLEX [Concomitant]
     Active Substance: TIZANIDINE HYDROCHLORIDE
     Indication: FIBROMYALGIA
     Dosage: 2 MG, 2 TABLETS, 4 TIMES A DAY, AS NEEDED

REACTIONS (1)
  - Hypoacusis [Unknown]
